FAERS Safety Report 7595355-3 (Version None)
Quarter: 2011Q3

REPORT INFORMATION
  Report Type: 
  Country: None (occurrence: None)
  Receive Date: 20110707
  Receipt Date: 20110630
  Transmission Date: 20111222
  Serious: Yes (Other)
  Sender: FDA-Public Use
  Company Number: FR-PFIZER INC-2011145923

PATIENT
  Age: 29 Year
  Sex: Female

DRUGS (12)
  1. DOXORUBICIN HCL [Suspect]
     Dosage: 25 MG/M2, DAY
     Route: 042
     Dates: start: 20090624, end: 20090708
  2. BLEOMYCIN [Suspect]
     Indication: HODGKIN'S DISEASE
     Dosage: 10 MG/M2, DAY
     Route: 042
     Dates: start: 20090526, end: 20090610
  3. BLEOMYCIN [Suspect]
     Dosage: 10 MG/M2, DAY
     Route: 042
     Dates: start: 20090624, end: 20090708
  4. VINBLASTINE ^ROGER BELLON^ [Suspect]
     Dosage: 6 MG/M2, DAY
     Route: 042
     Dates: start: 20090722, end: 20090805
  5. DACARBAZINE [Suspect]
     Dosage: 375 MG/M2, DAY
     Route: 042
     Dates: start: 20090722, end: 20090805
  6. DOXORUBICIN HCL [Suspect]
     Indication: HODGKIN'S DISEASE
     Dosage: 25 MG/M2, DAY
     Route: 042
     Dates: start: 20090526, end: 20090610
  7. VINBLASTINE SULFATE [Suspect]
     Indication: HODGKIN'S DISEASE
     Dosage: 6 MG/M2, DAY
     Route: 042
     Dates: start: 20090526, end: 20090610
  8. VINBLASTINE ^ROGER BELLON^ [Suspect]
     Dosage: 6 MG/M2, DAY
     Route: 042
     Dates: start: 20090624, end: 20090708
  9. DACARBAZINE [Suspect]
     Indication: HODGKIN'S DISEASE
     Dosage: 375 MG/M2 DAY
     Route: 042
     Dates: start: 20090526, end: 20090610
  10. DACARBAZINE [Suspect]
     Dosage: 375 MG/M2, DAY
     Route: 042
     Dates: start: 20090624, end: 20090708
  11. DOXORUBICIN HCL [Suspect]
     Dosage: 25 MG/M2, DAY
     Route: 042
     Dates: start: 20090722, end: 20090805
  12. BLEOMYCIN [Suspect]
     Dosage: 10 MG/M2, DAY
     Route: 042
     Dates: start: 20090722, end: 20090805

REACTIONS (1)
  - PLACENTAL TRANSFUSION SYNDROME [None]
